FAERS Safety Report 7724915-1 (Version None)
Quarter: 2011Q3

REPORT INFORMATION
  Report Type: 
  Country: None (occurrence: None)
  Receive Date: 20110901
  Receipt Date: 20110822
  Transmission Date: 20111222
  Serious: Yes (Hospitalization)
  Sender: FDA-Public Use
  Company Number: US-CELGENEUS-163-21880-11071516

PATIENT
  Sex: Male

DRUGS (12)
  1. DECADRON [Concomitant]
     Dosage: 4 MILLIGRAM
     Route: 048
  2. WARFARIN SODIUM [Concomitant]
     Dosage: 4 MILLIGRAM
     Route: 048
  3. DECADRON [Concomitant]
     Dosage: 20 MILLIGRAM
     Route: 048
  4. SIMVASTATIN [Concomitant]
     Dosage: 80 MILLIGRAM
     Route: 048
  5. LASIX [Concomitant]
     Dosage: 80 MILLIGRAM
     Route: 048
  6. POTASSIUM [Concomitant]
     Dosage: 20 MILLIEQUIVALENTS
     Route: 065
  7. ADVAIR DISKUS 100/50 [Concomitant]
     Dosage: 1 PUFF
     Route: 065
  8. DECADRON [Concomitant]
     Dosage: 16 MILLIGRAM
     Route: 048
  9. REVLIMID [Suspect]
     Indication: MULTIPLE MYELOMA
     Dosage: 25 MILLIGRAM
     Route: 048
     Dates: start: 20090406, end: 20090101
  10. PLAVIX [Concomitant]
     Dosage: 75 MILLIGRAM
     Route: 048
  11. VITAMIN B-12 [Concomitant]
     Dosage: 500 MICROGRAM
     Route: 048
  12. REVLIMID [Suspect]
     Dosage: 25 MILLIGRAM
     Route: 048
     Dates: start: 20090101

REACTIONS (4)
  - CARDIAC DISORDER [None]
  - DISTURBANCE IN ATTENTION [None]
  - INSOMNIA [None]
  - DYSPNOEA [None]
